FAERS Safety Report 8376813-0 (Version None)
Quarter: 2012Q2

REPORT INFORMATION
  Report Type: 
  Country: None (occurrence: None)
  Receive Date: 20120522
  Receipt Date: 20120514
  Transmission Date: 20120825
  Serious: Yes (Hospitalization, Other)
  Sender: FDA-Public Use
  Company Number: FR-ASTRAZENECA-2012SE26271

PATIENT
  Age: 22286 Day
  Sex: Female

DRUGS (6)
  1. LORAZEPAM [Concomitant]
     Route: 048
  2. TEGRETOL [Concomitant]
     Route: 048
  3. LITHIUM CARBONATE [Interacting]
     Indication: BIPOLAR II DISORDER
     Dosage: DOSE DECREASED PROGRESSIVELY SINCE 9 FEBRUARY 2012
     Route: 048
     Dates: start: 20040101, end: 20120216
  4. PROPRANOLOL [Concomitant]
     Route: 048
  5. FLEXEA [Concomitant]
  6. QUETIAPINE FUMARATE [Suspect]
     Indication: BIPOLAR II DISORDER
     Dosage: THE DOSE INCREASED POGRESSIVELY TO 300 MG DAILY
     Route: 048
     Dates: start: 20120115, end: 20120207

REACTIONS (6)
  - ELECTROENCEPHALOGRAM ABNORMAL [None]
  - CONFUSIONAL STATE [None]
  - CEREBRAL ATROPHY [None]
  - DRUG INTERACTION [None]
  - ELECTROCARDIOGRAM ABNORMAL [None]
  - AFFECTIVE DISORDER [None]
